FAERS Safety Report 15825864 (Version 18)
Quarter: 2019Q3

REPORT INFORMATION
  Report Type: Spontaneous
  Country: JP (occurrence: JP)
  Receive Date: 20190115
  Receipt Date: 20190705
  Transmission Date: 20191004
  Serious: Yes (Hospitalization, Other)
  Sender: FDA-Public Use
  Company Number: JP-PFIZER INC-2019016384

PATIENT
  Age: 9 Decade
  Sex: Male

DRUGS (26)
  1. VESICARE [Suspect]
     Active Substance: SOLIFENACIN SUCCINATE
     Dosage: 5 MG, 2X/DAY (MORNING AND EVENING)
     Route: 048
  2. VESICARE [Suspect]
     Active Substance: SOLIFENACIN SUCCINATE
     Dosage: UNK
     Route: 048
  3. BETANIS [Suspect]
     Active Substance: MIRABEGRON
     Dosage: 50 MG, 1X/DAY
     Route: 048
  4. DEPAS [ETIZOLAM] [Concomitant]
     Active Substance: ETIZOLAM
     Dosage: UNK
     Route: 048
  5. ASVERIN (TIPEPIDINE HIBENZATE) [Concomitant]
     Active Substance: TIPEPIDINE HIBENZATE
     Dosage: UNK
     Route: 048
  6. TRANSAMIN [Concomitant]
     Active Substance: TRANEXAMIC ACID
     Dosage: UNK UNK, UNKNOWN FREQ.
     Route: 048
  7. LOXONIN [Concomitant]
     Active Substance: LOXOPROFEN SODIUM
     Dosage: UNK, AS NEEDED
     Route: 048
  8. VESICARE [Suspect]
     Active Substance: SOLIFENACIN SUCCINATE
     Dosage: 5 MG, 1X/DAY
     Route: 048
  9. LYRICA [Concomitant]
     Active Substance: PREGABALIN
     Dosage: UNK
     Route: 048
  10. HUSCODE [Concomitant]
     Active Substance: CHLORPHENIRAMINE MALEATE\DIHYDROCODEINE PHOSPHATE\METHYLEPHEDRINE HYDROCHLORIDE, DL-
     Dosage: UNK UNK, UNKNOWN FREQ.
     Route: 065
  11. VESICARE [Suspect]
     Active Substance: SOLIFENACIN SUCCINATE
     Dosage: 5 MG, 1X/DAY AFTER BREAKFAST (7:00-7:30)
     Route: 048
  12. MUCOSOLVAN [Concomitant]
     Active Substance: AMBROXOL HYDROCHLORIDE
     Dosage: UNK UNK, UNKNOWN FREQ.
     Route: 048
  13. VESICARE [Suspect]
     Active Substance: SOLIFENACIN SUCCINATE
     Dosage: 5 MG, 1X/DAY
     Route: 048
     Dates: start: 201707, end: 201708
  14. SYMBICORT [Concomitant]
     Active Substance: BUDESONIDE\FORMOTEROL FUMARATE DIHYDRATE
     Dosage: UNK UNK, UNKNOWN FREQ.
     Route: 050
  15. VESICARE [Suspect]
     Active Substance: SOLIFENACIN SUCCINATE
     Dosage: 5 MG, 1X/DAY
     Route: 048
  16. CHOREITO [ALISMA PLANTAGO-AQUATICA VAR. ORIENTALE TUBER;GELATIN;POLYPO [Concomitant]
     Dosage: UNK
     Route: 065
  17. METHYCOBAL [Concomitant]
     Active Substance: METHYLCOBALAMIN
     Dosage: UNK
     Route: 048
  18. MYONAL [EPIRIZOLE HYDROCHLORIDE] [Concomitant]
     Dosage: UNK
     Route: 048
  19. CRAVIT [Concomitant]
     Active Substance: LEVOFLOXACIN
     Dosage: UNK UNK, UNKNOWN FREQ.
     Route: 048
  20. CELECOX [Suspect]
     Active Substance: CELECOXIB
     Dosage: UNK
     Route: 048
  21. VESICARE [Suspect]
     Active Substance: SOLIFENACIN SUCCINATE
     Dosage: 10 MG, 1X/DAY
     Route: 048
  22. VESICARE [Suspect]
     Active Substance: SOLIFENACIN SUCCINATE
     Dosage: 5 MG, 1X/DAY DAYTIME
     Route: 048
  23. VESICARE [Suspect]
     Active Substance: SOLIFENACIN SUCCINATE
     Dosage: 10 MG, 1X/DAY IN THE MORNING
     Route: 048
  24. ALLELOCK [Concomitant]
     Active Substance: OLOPATADINE HYDROCHLORIDE
     Indication: PRURITUS
     Dosage: 1 DF, TWICE DAILY (AFTER BREAKFAST AND DINNER)
     Route: 048
  25. DEPAS [ETIZOLAM] [Concomitant]
     Active Substance: ETIZOLAM
     Dosage: UNK, AS NEEDED
     Route: 048
  26. MUCOSTA [Concomitant]
     Active Substance: REBAMIPIDE
     Indication: ABDOMINAL DISCOMFORT
     Dosage: UNK
     Route: 048

REACTIONS (45)
  - Hyperventilation [Unknown]
  - Abdominal distension [Unknown]
  - Pain of skin [Unknown]
  - Urinary incontinence [Recovering/Resolving]
  - Constipation [Recovering/Resolving]
  - Insomnia [Unknown]
  - Dermatitis [Unknown]
  - Dry mouth [Unknown]
  - Gastrointestinal sounds abnormal [Unknown]
  - Peripheral coldness [Not Recovered/Not Resolved]
  - Seizure [Recovered/Resolved]
  - Somnolence [Unknown]
  - Dysphagia [Unknown]
  - Urethritis [Unknown]
  - Nausea [Recovered/Resolved]
  - Pruritus [Unknown]
  - Rhinitis [Unknown]
  - Ocular hyperaemia [Unknown]
  - Eye pruritus [Unknown]
  - Intentional product misuse [Unknown]
  - Dizziness postural [Unknown]
  - Abdominal pain [Unknown]
  - Prostatitis [Unknown]
  - Somnolence [Unknown]
  - Perineal pain [Unknown]
  - Neuralgia [Unknown]
  - Blood pressure increased [Unknown]
  - Nephrolithiasis [Unknown]
  - Abdominal discomfort [Recovering/Resolving]
  - Blood urine present [Not Recovered/Not Resolved]
  - Nasopharyngitis [Unknown]
  - Dysuria [Unknown]
  - Pain in extremity [Not Recovered/Not Resolved]
  - Tendon rupture [Unknown]
  - Thirst [Recovering/Resolving]
  - Headache [Unknown]
  - Erythema [Unknown]
  - Infected dermal cyst [Not Recovered/Not Resolved]
  - Rash erythematous [Unknown]
  - Insomnia [Unknown]
  - Vomiting [Unknown]
  - Dizziness [Unknown]
  - Pruritus genital [Unknown]
  - Vomiting [Unknown]
  - Rash [Unknown]

NARRATIVE: CASE EVENT DATE: 20180111
